FAERS Safety Report 12624549 (Version 1)
Quarter: 2016Q3

REPORT INFORMATION
  Report Type: Spontaneous
  Country: US (occurrence: US)
  Receive Date: 20160805
  Receipt Date: 20160805
  Transmission Date: 20161109
  Serious: No
  Sender: FDA-Public Use
  Company Number: US-DRREDDYS-USA/USA/16/0068154

PATIENT
  Age: 40 Year
  Sex: Female
  Weight: 58.9 kg

DRUGS (4)
  1. IBUPROFEN. [Suspect]
     Active Substance: IBUPROFEN
     Indication: PRODUCT USED FOR UNKNOWN INDICATION
     Route: 065
     Dates: start: 20160120
  2. ACETAMINOPHEN. [Concomitant]
     Active Substance: ACETAMINOPHEN
     Indication: PRODUCT USED FOR UNKNOWN INDICATION
     Route: 065
  3. VITAMIN D [Concomitant]
     Active Substance: CHOLECALCIFEROL
     Indication: PRODUCT USED FOR UNKNOWN INDICATION
     Route: 065
  4. CIPROFLOXACIN 250 MG [Suspect]
     Active Substance: CIPROFLOXACIN
     Indication: CYSTITIS
     Route: 048
     Dates: start: 20160120, end: 20160122

REACTIONS (15)
  - Peripheral coldness [Recovered/Resolved]
  - Muscle twitching [Recovered/Resolved]
  - Limb discomfort [Recovered/Resolved]
  - Musculoskeletal pain [Recovered/Resolved]
  - Paraesthesia [Recovered/Resolved]
  - Insomnia [Recovered/Resolved]
  - Restlessness [Recovered/Resolved]
  - Feeling abnormal [Recovered/Resolved]
  - Pruritus [Recovered/Resolved]
  - Pain in extremity [Recovered/Resolved]
  - Dysstasia [Recovered/Resolved]
  - Serum sickness [Recovered/Resolved]
  - Palpitations [Recovered/Resolved]
  - Neuropathy peripheral [Recovered/Resolved]
  - Anxiety [Recovered/Resolved]
